FAERS Safety Report 6933903-4 (Version None)
Quarter: 2010Q3

REPORT INFORMATION
  Report Type: 
  Country: None (occurrence: None)
  Receive Date: 20100820
  Receipt Date: 20100810
  Transmission Date: 20110219
  Serious: Yes (Other)
  Sender: FDA-Public Use
  Company Number: CA-ROCHE-720311

PATIENT
  Sex: Male

DRUGS (13)
  1. TOCILIZUMAB [Suspect]
     Indication: RHEUMATOID ARTHRITIS
     Dosage: FORM: INFUSION
     Route: 042
     Dates: start: 20100611
  2. METHOTREXATE [Concomitant]
  3. PREDNISONE [Concomitant]
  4. CELEBREX [Concomitant]
  5. RAMIPRIL [Concomitant]
  6. SIMVASTIN [Concomitant]
     Dosage: DRUG NAME: SYMVASTIN.
  7. FOLIC ACID [Concomitant]
  8. PANTOPRAZOLE [Concomitant]
  9. ACTONEL [Concomitant]
  10. ASPIRIN [Concomitant]
  11. CODEINE [Concomitant]
  12. VITAMINS C, D + E [Concomitant]
  13. OMEGA 369 [Concomitant]

REACTIONS (4)
  - ALTERED STATE OF CONSCIOUSNESS [None]
  - DIZZINESS [None]
  - HYPERHIDROSIS [None]
  - MYOCARDIAL INFARCTION [None]
